FAERS Safety Report 9293639 (Version 2)
Quarter: 2013Q3

REPORT INFORMATION
  Report Type: Spontaneous
  Country: IT (occurrence: IT)
  Receive Date: 20130516
  Receipt Date: 20130731
  Transmission Date: 20140515
  Serious: Yes (Hospitalization)
  Sender: FDA-Public Use
  Company Number: PHHY2013IT048568

PATIENT
  Age: 66 Year
  Sex: Female

DRUGS (5)
  1. COMBISARTAN [Suspect]
     Dosage: UNK UKN, UNK
     Route: 048
     Dates: start: 20120319, end: 20130318
  2. LITIO CARBONATO [Suspect]
     Indication: BIPOLAR DISORDER
     Dosage: 600 MG, DAILY
     Route: 048
     Dates: start: 20120319
  3. LITIO CARBONATO [Suspect]
     Dosage: 300 MG, DAILY
     Route: 048
     Dates: end: 20130318
  4. SERTRALINA [Concomitant]
  5. SELES BETA [Concomitant]
     Dosage: UNK UKN, UNK

REACTIONS (3)
  - Dysentery [Unknown]
  - Renal failure acute [Unknown]
  - Dehydration [Unknown]
